FAERS Safety Report 5674655-8 (Version None)
Quarter: 2008Q1

REPORT INFORMATION
  Report Type: 
  Country: None (occurrence: None)
  Receive Date: 20080320
  Receipt Date: 20080313
  Transmission Date: 20080703
  Serious: Yes (Other)
  Sender: FDA-Public Use
  Company Number: A0715255A

PATIENT
  Age: 30 Year
  Sex: Female

DRUGS (3)
  1. PAXIL [Suspect]
     Indication: PANIC DISORDER
     Route: 048
  2. LORAZEPAM [Concomitant]
  3. SUBOXONE [Concomitant]

REACTIONS (2)
  - ROAD TRAFFIC ACCIDENT [None]
  - THROMBOSIS [None]
